FAERS Safety Report 18456576 (Version 1)
Quarter: 2020Q4

REPORT INFORMATION
  Report Type: Spontaneous
  Country: IR (occurrence: IR)
  Receive Date: 20201103
  Receipt Date: 20201103
  Transmission Date: 20210114
  Serious: Yes (Hospitalization, Other)
  Sender: FDA-Public Use
  Company Number: IR-STRIDES ARCOLAB LIMITED-2020SP012986

PATIENT
  Age: 27 Year
  Sex: Male

DRUGS (2)
  1. METHOTREXATE. [Suspect]
     Active Substance: METHOTREXATE
     Indication: BONE MARROW TRANSPLANT
     Dosage: 7.5 MILLIGRAM, ONCE A WEEK
     Route: 065
  2. PREDNISOLONE. [Suspect]
     Active Substance: PREDNISOLONE
     Indication: BONE MARROW TRANSPLANT
     Dosage: 15MG/DAY
     Route: 048

REACTIONS (13)
  - Ophthalmic herpes zoster [Recovered/Resolved]
  - Conjunctivitis [Recovered/Resolved]
  - Ocular vasculitis [Recovered/Resolved]
  - Visual impairment [Recovered/Resolved]
  - Eye pain [Recovered/Resolved]
  - Secretion discharge [Recovered/Resolved]
  - Symblepharon [Recovered/Resolved]
  - Corneal epithelium defect [Recovered/Resolved]
  - Punctate keratitis [Recovered/Resolved]
  - Ocular hyperaemia [Recovered/Resolved]
  - Ischaemia [Recovered/Resolved]
  - Rash vesicular [Unknown]
  - Scar [Unknown]
